FAERS Safety Report 4596843-4 (Version None)
Quarter: 2005Q1

REPORT INFORMATION
  Report Type: 
  Country: None (occurrence: None)
  Receive Date: 20050228
  Receipt Date: 20050215
  Transmission Date: 20050727
  Serious: Yes (Death)
  Sender: FDA-Public Use
  Company Number: HQWYE406818FEB05

PATIENT

DRUGS (3)
  1. RAPAMUNE [Suspect]
     Indication: GRAFT VERSUS HOST DISEASE
     Dosage: 10 MG LOADING DOSE FOLLOWED BY DAILY DOSE  OF 5 MG, ORAL
     Route: 048
  2. TACROLIMUS (TACROLIMUS) [Concomitant]
  3. PREDNISONE [Concomitant]

REACTIONS (1)
  - ACUTE MYELOID LEUKAEMIA [None]
